FAERS Safety Report 6007659-6 (Version None)
Quarter: 2008Q4

REPORT INFORMATION
  Report Type: 
  Country: None (occurrence: None)
  Receive Date: 20081217
  Receipt Date: 20080401
  Transmission Date: 20090506
  Serious: No
  Sender: FDA-Public Use
  Company Number: US-ASTRAZENECA-2008UW06478

PATIENT
  Age: 66 Year
  Sex: Female
  Weight: 67.1 kg

DRUGS (2)
  1. CRESTOR [Suspect]
     Route: 048
     Dates: end: 20071118
  2. SINGULAIR [Concomitant]

REACTIONS (1)
  - SENSORY DISTURBANCE [None]
